FAERS Safety Report 5693645-2 (Version None)
Quarter: 2008Q2

REPORT INFORMATION
  Report Type: 
  Country: None (occurrence: None)
  Receive Date: 20080403
  Receipt Date: 20080325
  Transmission Date: 20081010
  Serious: Yes (Hospitalization, Other)
  Sender: FDA-Public Use
  Company Number: PHRM2008FR01118

PATIENT
  Age: 99 Year
  Sex: Female

DRUGS (6)
  1. RISORDAN [Suspect]
     Dosage: 20 MG, TID
     Route: 048
     Dates: end: 20071112
  2. ALPRAZOLAM [Suspect]
     Dosage: 0.5 MG, QD
     Route: 048
     Dates: end: 20071112
  3. VASTAREL ^BIOPHARMA^ [Suspect]
     Dosage: 35 MG, BID
     Route: 048
     Dates: end: 20071112
  4. PAROXETINE HCL [Suspect]
     Dosage: 1 DF, QD
     Route: 048
     Dates: end: 20071112
  5. KARDEGIC [Concomitant]
     Dosage: 75 MG, QD
     Route: 048
     Dates: end: 20071112
  6. COTAREG [Suspect]
     Dosage: 80/12.5 MG/DAY
     Route: 048
     Dates: end: 20071112

REACTIONS (9)
  - AORTIC STENOSIS [None]
  - ATRIAL FIBRILLATION [None]
  - BACK PAIN [None]
  - CONCUSSION [None]
  - CONFUSIONAL STATE [None]
  - FALL [None]
  - HYPOTENSION [None]
  - MALAISE [None]
  - VENTRICULAR EXTRASYSTOLES [None]
